FAERS Safety Report 21609558 (Version 2)
Quarter: 2022Q4

REPORT INFORMATION
  Report Type: Report from Study
  Country: US (occurrence: US)
  Receive Date: 20221117
  Receipt Date: 20221128
  Transmission Date: 20230113
  Serious: Yes (Other)
  Sender: FDA-Public Use
  Company Number: US-SA-SAC20221026000584

PATIENT
  Age: 65 Year
  Sex: Male

DRUGS (1)
  1. DRONEDARONE [Suspect]
     Active Substance: DRONEDARONE
     Indication: Atrial fibrillation
     Dosage: 400 MG, Q12H
     Route: 048
     Dates: start: 20220919

REACTIONS (7)
  - Arrhythmia [Unknown]
  - Abdominal distension [Unknown]
  - Atrial flutter [Unknown]
  - Chest pain [Unknown]
  - Fatigue [Unknown]
  - Cardioversion [Unknown]
  - Product dose omission in error [Unknown]

NARRATIVE: CASE EVENT DATE: 20221001
